FAERS Safety Report 23992747 (Version 1)
Quarter: 2024Q2

REPORT INFORMATION
  Report Type: Spontaneous
  Country: US (occurrence: US)
  Receive Date: 20240620
  Receipt Date: 20240620
  Transmission Date: 20240716
  Serious: No
  Sender: FDA-Public Use
  Company Number: US-Calliditas-2024CAL01093

PATIENT
  Age: 34 Year
  Sex: Female

DRUGS (1)
  1. TARPEYO [Suspect]
     Active Substance: BUDESONIDE
     Indication: IgA nephropathy
     Route: 048
     Dates: start: 20240531, end: 202406

REACTIONS (8)
  - Abdominal discomfort [Recovering/Resolving]
  - Malaise [Recovering/Resolving]
  - Decreased appetite [Recovering/Resolving]
  - Dry eye [Recovering/Resolving]
  - Vision blurred [Recovering/Resolving]
  - Disturbance in attention [Recovering/Resolving]
  - Depressed mood [Recovering/Resolving]
  - Personality change [Recovering/Resolving]
